FAERS Safety Report 15739655 (Version 1)
Quarter: 2018Q4

REPORT INFORMATION
  Report Type: Spontaneous
  Country: US (occurrence: US)
  Receive Date: 20181218
  Receipt Date: 20181218
  Transmission Date: 20190205
  Serious: Yes (Hospitalization)
  Sender: FDA-Public Use
  Company Number: None

PATIENT
  Age: 69 Year
  Sex: Male
  Weight: 65.7 kg

DRUGS (8)
  1. NPLATE [Concomitant]
     Active Substance: ROMIPLOSTIM
  2. GRANISETRON [Concomitant]
     Active Substance: GRANISETRON
  3. KYPROLIS [Concomitant]
     Active Substance: CARFILZOMIB
  4. DARZALEX [Suspect]
     Active Substance: DARATUMUMAB
     Indication: PLASMA CELL MYELOMA
     Dosage: ?          OTHER FREQUENCY:WEEKLY;?
     Route: 042
     Dates: start: 20180716
  5. POMALYST [Concomitant]
     Active Substance: POMALIDOMIDE
  6. FAMOTIDINE. [Concomitant]
     Active Substance: FAMOTIDINE
  7. DEXAMETHASONE. [Concomitant]
     Active Substance: DEXAMETHASONE
  8. NOVOLOG [Concomitant]
     Active Substance: INSULIN ASPART

REACTIONS (1)
  - Hospice care [None]
